FAERS Safety Report 6077353-4 (Version None)
Quarter: 2009Q1

REPORT INFORMATION
  Report Type: 
  Country: None (occurrence: None)
  Receive Date: 20090213
  Receipt Date: 20090209
  Transmission Date: 20090719
  Serious: Yes (Hospitalization)
  Sender: FDA-Public Use
  Company Number: D0060468A

PATIENT
  Age: 71 Year
  Sex: Female

DRUGS (1)
  1. HYCAMTIN [Suspect]
     Route: 065

REACTIONS (3)
  - APPENDICITIS PERFORATED [None]
  - HAEMATOTOXICITY [None]
  - SEPSIS [None]
